FAERS Safety Report 14183052 (Version 1)
Quarter: 2017Q4

REPORT INFORMATION
  Report Type: Spontaneous
  Country: US (occurrence: US)
  Receive Date: 20171113
  Receipt Date: 20171113
  Transmission Date: 20180321
  Serious: Yes (Other)
  Sender: FDA-Public Use
  Company Number: US-PFIZER INC-2017481908

PATIENT
  Age: 1 Year
  Sex: Female
  Weight: 22.23 kg

DRUGS (1)
  1. GENOTROPIN [Suspect]
     Active Substance: SOMATROPIN
     Indication: PRADER-WILLI SYNDROME
     Dosage: 0.8 MG, DAILY
     Route: 030
     Dates: start: 2012

REACTIONS (2)
  - Epilepsy [Unknown]
  - Product use issue [Unknown]

NARRATIVE: CASE EVENT DATE: 2012
